FAERS Safety Report 21612855 (Version 1)
Quarter: 2022Q4

REPORT INFORMATION
  Report Type: Spontaneous
  Country: FR (occurrence: FR)
  Receive Date: 20221118
  Receipt Date: 20221118
  Transmission Date: 20230112
  Serious: Yes (Hospitalization)
  Sender: FDA-Public Use
  Company Number: None

PATIENT
  Age: 49 Year
  Sex: Female
  Weight: 75 kg

DRUGS (4)
  1. LANSOPRAZOLE [Suspect]
     Active Substance: LANSOPRAZOLE
     Indication: Product used for unknown indication
     Dosage: UNK
     Route: 048
     Dates: end: 20220304
  2. ASTRAZENECA COVID-19 VACCINE [Suspect]
     Active Substance: AZD-1222
     Indication: COVID-19 prophylaxis
     Dosage: 150/150 MILLIGRAM
     Route: 042
     Dates: start: 20220119, end: 20220119
  3. MYFORTIC [Suspect]
     Active Substance: MYCOPHENOLATE SODIUM
     Indication: Product used for unknown indication
     Dosage: UNK
     Route: 048
     Dates: end: 20220304
  4. BACTRIM [Suspect]
     Active Substance: SULFAMETHOXAZOLE\TRIMETHOPRIM
     Indication: Product used for unknown indication
     Dosage: UNK
     Route: 048
     Dates: end: 20220304

REACTIONS (3)
  - Leukopenia [Recovered/Resolved]
  - Lymphopenia [Not Recovered/Not Resolved]
  - Neutropenia [Recovered/Resolved]

NARRATIVE: CASE EVENT DATE: 20220304
